FAERS Safety Report 9372055 (Version 2)
Quarter: 2013Q3

REPORT INFORMATION
  Report Type: Spontaneous
  Country: JP (occurrence: JP)
  Receive Date: 20130627
  Receipt Date: 20130703
  Transmission Date: 20140515
  Serious: Yes (Other)
  Sender: FDA-Public Use
  Company Number: JP-BAYER-2013-076668

PATIENT
  Age: 77 Year
  Sex: Male
  Weight: 51 kg

DRUGS (2)
  1. NEXAVAR [Suspect]
     Indication: RENAL CANCER
     Dosage: DAILY DOSE 800 MG
     Route: 048
     Dates: start: 200910, end: 200910
  2. NEXAVAR [Suspect]
     Indication: RENAL CANCER
     Dosage: DAILY DOSE 400 MG
     Route: 048
     Dates: start: 200910, end: 201001

REACTIONS (6)
  - Polycythaemia [None]
  - Blood erythropoietin increased [None]
  - Haemoglobin increased [None]
  - Haematuria [None]
  - Erythema [Recovering/Resolving]
  - Glossitis [Recovering/Resolving]
